FAERS Safety Report 25973276 (Version 2)
Quarter: 2025Q4

REPORT INFORMATION
  Report Type: Report from Study
  Country: US (occurrence: US)
  Receive Date: 20251029
  Receipt Date: 20251123
  Transmission Date: 20260117
  Serious: Yes (Hospitalization)
  Sender: IPSEN BIOPHARMACEUTICALS, INC.
  Company Number: US-IPSEN Group, Research and Development-2024-16497

PATIENT
  Age: 3 Year
  Sex: Male
  Weight: 14.4 kg

DRUGS (2)
  1. BYLVAY [Suspect]
     Active Substance: ODEVIXIBAT
     Indication: Progressive familial intrahepatic cholestasis
     Dosage: 1 CAPSULE DAILY
     Route: 048
     Dates: start: 20240710, end: 202408
  2. BYLVAY [Suspect]
     Active Substance: ODEVIXIBAT
     Route: 048
     Dates: start: 20250425

REACTIONS (4)
  - Liver transplant [Unknown]
  - Diarrhoea [Recovering/Resolving]
  - Mucous stools [Recovering/Resolving]
  - Incontinence [Recovering/Resolving]

NARRATIVE: CASE EVENT DATE: 20240814
